FAERS Safety Report 5279382-7 (Version None)
Quarter: 2007Q1

REPORT INFORMATION
  Report Type: 
  Country: None (occurrence: None)
  Receive Date: 20070328
  Receipt Date: 20070321
  Transmission Date: 20070707
  Serious: Yes (Other)
  Sender: FDA-Public Use
  Company Number: 2007UW05594

PATIENT
  Age: 71 Year
  Sex: Female

DRUGS (3)
  1. ARIMIDEX [Suspect]
     Indication: BREAST CANCER
     Route: 048
     Dates: start: 20050401
  2. BROMALINE [Concomitant]
  3. COSAMINE CS [Concomitant]

REACTIONS (4)
  - ARTHRALGIA [None]
  - FALL [None]
  - SINUS DISORDER [None]
  - TOOTH DISORDER [None]
